FAERS Safety Report 9172376 (Version 1)
Quarter: 2012Q4

REPORT INFORMATION
  Report Type: 
  Country: AU (occurrence: AU)
  Receive Date: 20120911
  Receipt Date: 20120911
  Transmission Date: 20130627
  Serious: Yes (Death, Other)
  Sender: FDA-Public Use
  Company Number: AU-NAPPMUNDI-USA-2012-0092471

PATIENT
  Age: 89 Year
  Sex: Male

DRUGS (4)
  1. OXYCONTIN TABLETS [Suspect]
     Indication: HERPES ZOSTER
     Dosage: 10 mg, daily
     Route: 048
     Dates: end: 20120809
  2. OXYCONTIN TABLETS [Suspect]
     Dosage: 20 mg, daily
     Route: 048
     Dates: start: 20120809
  3. ANTIHYPERTENSIVES [Concomitant]
     Indication: PRODUCT USED FOR UNKNOWN INDICATION
  4. ANTICOAGULANT (UNSPECIFIED) [Concomitant]
     Indication: PRODUCT USED FOR UNKNOWN INDICATION

REACTIONS (3)
  - Cardiac hypertrophy [Fatal]
  - Pallor [Unknown]
  - Hyperhidrosis [Unknown]
